FAERS Safety Report 9249422 (Version 1)
Quarter: 2013Q1

REPORT INFORMATION
  Report Type: Spontaneous
  Country: US (occurrence: None)
  Receive Date: 20130305
  Receipt Date: 20130305
  Transmission Date: 20140127
  Serious: Yes (Other)
  Sender: FDA-Public Use
  Company Number: 163-21880-12100878

PATIENT
  Age: 73 Year
  Sex: Male

DRUGS (4)
  1. REVLIMID [Suspect]
     Indication: PLASMA CELL MYELOMA
     Dosage: 25 MG, 21 IN 21 D, PO
     Dates: start: 20120815
  2. DEXAMETHASONE (DEXAMETHASONE) [Concomitant]
  3. SULFAMETHOXAZOLE/TRIMETHOPRIM DS (BACTRIM) [Concomitant]
  4. AMLODIPINE BESY-BENAZEPRIL HCL (LOTREL) [Concomitant]

REACTIONS (4)
  - Asthenia [None]
  - Fatigue [None]
  - Dizziness [None]
  - Nausea [None]
